FAERS Safety Report 8472320-5 (Version None)
Quarter: 2012Q2

REPORT INFORMATION
  Report Type: 
  Country: None (occurrence: None)
  Receive Date: 20120323
  Receipt Date: 20110822
  Transmission Date: 20120825
  Serious: Yes (Hospitalization, Other)
  Sender: FDA-Public Use
  Company Number: 163-21880-11082582

PATIENT
  Age: 94 Year
  Sex: Male

DRUGS (9)
  1. AMLODIPINE BESYLATE [Concomitant]
  2. FUROSEMIDE [Concomitant]
  3. REVLIMID [Suspect]
     Indication: MULTIPLE MYELOMA
     Dosage: 25 MG, DAILY X 14 DYS PO
     Route: 048
     Dates: start: 20110414
  4. VITAMIN D3(COLECALDIVEROL) [Concomitant]
  5. RAMIPRIL [Concomitant]
  6. FOLIC ACID [Concomitant]
  7. METOPROLOL SUCCINATE [Concomitant]
  8. ASPIRIN [Concomitant]
  9. SIMVASTATIN [Concomitant]

REACTIONS (2)
  - LOSS OF CONSCIOUSNESS [None]
  - ASTHENIA [None]
